FAERS Safety Report 9133125 (Version 5)
Quarter: 2014Q2

REPORT INFORMATION
  Report Type: Spontaneous
  Country: US (occurrence: US)
  Receive Date: 20130301
  Receipt Date: 20140508
  Transmission Date: 20141212
  Serious: Yes (Hospitalization, Disabling, Other)
  Sender: FDA-Public Use
  Company Number: US-009507513-1303USA000350

PATIENT
  Sex: Female
  Weight: 53.97 kg

DRUGS (10)
  1. FOSAMAX [Suspect]
     Indication: OSTEOPENIA
     Dosage: 10 MG, UNK
     Route: 048
     Dates: end: 20101009
  2. FOSAMAX [Suspect]
     Dosage: 70 MG, QW
     Route: 048
  3. FOSAMAX PLUS D [Suspect]
     Indication: OSTEOPENIA
     Dosage: 70MG/2800IU UNK
     Route: 048
     Dates: end: 20071212
  4. OS-CAL (CALCITRIOL) [Concomitant]
     Indication: OSTEOPENIA
     Dosage: 500 MG, TID
     Dates: start: 1996
  5. AMITRIPTYLINE HYDROCHLORIDE [Concomitant]
     Indication: FIBROMYALGIA
     Dosage: 20 MG, HS
     Route: 048
     Dates: start: 19981016
  6. ASTELIN (AZELASTINE HYDROCHLORIDE) [Concomitant]
     Indication: HYPERSENSITIVITY
     Dosage: UNK
     Dates: start: 20010404, end: 20070927
  7. CENESTIN [Concomitant]
     Indication: MENOPAUSAL SYMPTOMS
     Dosage: UNK
     Dates: start: 20051129, end: 20060507
  8. ORTHO-PREFEST [Concomitant]
     Indication: MENOPAUSAL SYMPTOMS
     Dosage: UNK
     Dates: start: 20000711, end: 20060825
  9. ZYRTEC [Concomitant]
     Indication: HYPERSENSITIVITY
     Dosage: UNK
     Dates: start: 20010428, end: 20080201
  10. ZOLOFT [Concomitant]
     Indication: FIBROMYALGIA
     Dosage: UNK

REACTIONS (55)
  - Femur fracture [Recovering/Resolving]
  - Intramedullary rod insertion [Recovering/Resolving]
  - Low turnover osteopathy [Not Recovered/Not Resolved]
  - Hypersensitivity [Unknown]
  - Bacterial infection [Unknown]
  - Ear infection [Unknown]
  - Fungal infection [Unknown]
  - Haemorrhagic anaemia [Recovering/Resolving]
  - Arthritis [Unknown]
  - Sinus congestion [Unknown]
  - Asthma [Unknown]
  - Psoriasis [Unknown]
  - Tachycardia [Unknown]
  - Ecchymosis [Unknown]
  - Dysuria [Unknown]
  - Hypoproteinaemia [Unknown]
  - Hypoalbuminaemia [Unknown]
  - Hepatic enzyme increased [Unknown]
  - Thrombophlebitis [Recovering/Resolving]
  - Muscle atrophy [Unknown]
  - Anaemia [Unknown]
  - Chondrolysis [Unknown]
  - Patellofemoral pain syndrome [Unknown]
  - Joint effusion [Unknown]
  - Synovial cyst [Unknown]
  - Osteochondrosis [Unknown]
  - Muscle atrophy [Unknown]
  - Meniscus injury [Unknown]
  - Skin irritation [Unknown]
  - Pain [Unknown]
  - Hypothyroidism [Unknown]
  - Seasonal affective disorder [Not Recovered/Not Resolved]
  - Acne [Unknown]
  - Vulvovaginal burning sensation [Unknown]
  - Vaginal discharge [Not Recovered/Not Resolved]
  - Depression [Not Recovered/Not Resolved]
  - Intervertebral disc degeneration [Unknown]
  - Panic disorder [Unknown]
  - Autoimmune thyroiditis [Unknown]
  - Anxiety [Unknown]
  - Rheumatoid arthritis [Unknown]
  - Fungal infection [Unknown]
  - Metrorrhagia [Unknown]
  - Adverse event [Unknown]
  - Adverse event [Unknown]
  - Road traffic accident [Unknown]
  - Arthralgia [Unknown]
  - Constipation [Unknown]
  - Gastritis [Unknown]
  - Constipation [Unknown]
  - Joint swelling [Unknown]
  - Pruritus [Unknown]
  - Alopecia [Unknown]
  - Vulvovaginal pruritus [Not Recovered/Not Resolved]
  - Drug ineffective [Unknown]
